FAERS Safety Report 8255237-0 (Version None)
Quarter: 2012Q2

REPORT INFORMATION
  Report Type: 
  Country: None (occurrence: None)
  Receive Date: 20120403
  Receipt Date: 20120327
  Transmission Date: 20120825
  Serious: Yes (Life-Threatening)
  Sender: FDA-Public Use
  Company Number: IT-NOVOPROD-347257

PATIENT
  Age: 83 Year
  Sex: Male

DRUGS (8)
  1. NOVOMIX 50 FLEXPEN [Suspect]
     Indication: TYPE 1 DIABETES MELLITUS
     Dosage: 22 U/ML, QD
     Route: 058
     Dates: start: 20110101
  2. CALCIUM CARBONATE [Concomitant]
  3. LANOXIN [Concomitant]
  4. ARIXTRA [Concomitant]
  5. NOVORAPID PENFILL [Suspect]
     Indication: TYPE 1 DIABETES MELLITUS
     Dosage: 33 U/ML
     Route: 058
     Dates: start: 20110101
  6. ANDROCUR [Concomitant]
  7. LASIX [Concomitant]
  8. RENAGEL [Concomitant]

REACTIONS (2)
  - SOPOR [None]
  - HYPOGLYCAEMIA [None]
